FAERS Safety Report 24413663 (Version 1)
Quarter: 2024Q4

REPORT INFORMATION
  Report Type: Spontaneous
  Country: EU (occurrence: EU)
  Receive Date: 20241008
  Receipt Date: 20241008
  Transmission Date: 20250114
  Serious: Yes (Hospitalization)
  Sender: ETHYPHARM
  Company Number: None

PATIENT

DRUGS (6)
  1. BUPRENORPHINE HYDROCHLORIDE [Suspect]
     Active Substance: BUPRENORPHINE HYDROCHLORIDE
  2. CANNABIS SATIVA SUBSP. INDICA TOP [Suspect]
     Active Substance: CANNABIS SATIVA SUBSP. INDICA TOP
  3. METHADONE HYDROCHLORIDE [Suspect]
     Active Substance: METHADONE HYDROCHLORIDE
     Route: 048
     Dates: start: 2012
  4. HEROIN [Suspect]
     Active Substance: DIAMORPHINE
     Route: 045
     Dates: start: 1997
  5. COCAINE [Suspect]
     Active Substance: COCAINE
     Route: 042
     Dates: start: 1997
  6. COCAINE [Suspect]
     Active Substance: COCAINE
     Dosage: 1 ? 2 G PAR JOUR ACTUELLEMENT
     Route: 045
     Dates: start: 1997

REACTIONS (8)
  - Spinal cord infection [Recovering/Resolving]
  - Oesophagitis [Recovering/Resolving]
  - General physical health deterioration [Recovering/Resolving]
  - Intervertebral discitis [Recovering/Resolving]
  - Gastric ulcer [Recovering/Resolving]
  - Endocarditis [Recovering/Resolving]
  - Hepatitis C antibody positive [Not Recovered/Not Resolved]
  - Drug abuse [Not Recovered/Not Resolved]

NARRATIVE: CASE EVENT DATE: 20230501
